FAERS Safety Report 23161913 (Version 1)
Quarter: 2023Q4

REPORT INFORMATION
  Report Type: Spontaneous
  Country: MY (occurrence: MY)
  Receive Date: 20231109
  Receipt Date: 20231109
  Transmission Date: 20240110
  Serious: Yes (Other)
  Sender: FDA-Public Use
  Company Number: MY-STRIDES ARCOLAB LIMITED-2023SP016686

PATIENT
  Sex: Female

DRUGS (2)
  1. PREDNISOLONE [Suspect]
     Active Substance: PREDNISOLONE
     Indication: Product used for unknown indication
     Dosage: UNK (MOTHER DOSE: 15 MILLLIGRAM)
     Route: 064
  2. AZATHIOPRINE [Suspect]
     Active Substance: AZATHIOPRINE
     Indication: Product used for unknown indication
     Dosage: UNK, (MOTHER DOSE: 125MG DAILY)
     Route: 064

REACTIONS (4)
  - Myasthenia gravis neonatal [Unknown]
  - Low birth weight baby [Unknown]
  - Neonatal respiratory distress [Unknown]
  - Foetal exposure during pregnancy [Unknown]
